FAERS Safety Report 7105786-3 (Version None)
Quarter: 2010Q4

REPORT INFORMATION
  Report Type: 
  Country: None (occurrence: None)
  Receive Date: 20101110
  Receipt Date: 20101025
  Transmission Date: 20110411
  Serious: Yes (Hospitalization, Other)
  Sender: FDA-Public Use
  Company Number: 2010P1001990

PATIENT
  Age: 58 Year
  Sex: Male
  Weight: 130.1823 kg

DRUGS (3)
  1. WARFARIN SODIUM [Suspect]
     Indication: THROMBOSIS
     Dosage: 5 MG; QD; PO, 2.5 MG; QOD; PO, 5 MG; QOD; PO
     Route: 048
     Dates: start: 20100921, end: 20101006
  2. WARFARIN SODIUM [Suspect]
     Indication: THROMBOSIS
     Dosage: 5 MG; QD; PO, 2.5 MG; QOD; PO, 5 MG; QOD; PO
     Route: 048
     Dates: start: 20101008
  3. METOPROLOL TARTRATE [Concomitant]

REACTIONS (2)
  - INTERNATIONAL NORMALISED RATIO INCREASED [None]
  - PRODUCT SUBSTITUTION ISSUE [None]
